FAERS Safety Report 18266439 (Version 2)
Quarter: 2021Q1

REPORT INFORMATION
  Report Type: Spontaneous
  Country: IT (occurrence: IT)
  Receive Date: 20200915
  Receipt Date: 20210112
  Transmission Date: 20210419
  Serious: Yes (Other)
  Sender: FDA-Public Use
  Company Number: IT-PFIZER INC-2020352698

PATIENT
  Age: 53 Year
  Sex: Male

DRUGS (4)
  1. HEPARIN SODIUM. [Suspect]
     Active Substance: HEPARIN SODIUM
     Indication: PERIPHERAL ISCHAEMIA
     Dosage: UNK (INFUSION)
  2. HEPARIN SODIUM. [Suspect]
     Active Substance: HEPARIN SODIUM
     Indication: ANTICOAGULANT THERAPY
     Dosage: 50 IU, DAILY (INCREASE IN UFH REQUIREMENT ABOVE 50 U/DAY)
  3. PROSTACYCLIN [Concomitant]
     Active Substance: EPOPROSTENOL
     Indication: PERIPHERAL ISCHAEMIA
     Dosage: UNK
  4. HEPARIN SODIUM. [Suspect]
     Active Substance: HEPARIN SODIUM
     Dosage: 79.2 IU, DAILY

REACTIONS (1)
  - Drug resistance [Unknown]
